FAERS Safety Report 19510290 (Version 7)
Quarter: 2022Q1

REPORT INFORMATION
  Report Type: Report from Study
  Country: US (occurrence: US)
  Receive Date: 20210708
  Receipt Date: 20220131
  Transmission Date: 20220423
  Serious: Yes (Death, Hospitalization, Other)
  Sender: FDA-Public Use
  Company Number: NVSC2021US153990

PATIENT
  Sex: Female

DRUGS (20)
  1. PIQRAY [Suspect]
     Active Substance: ALPELISIB
     Indication: Breast cancer metastatic
     Dosage: 300 MG, QD
     Route: 048
     Dates: start: 20210617, end: 20211207
  2. ZOFRAN [Concomitant]
     Active Substance: ONDANSETRON HYDROCHLORIDE
     Indication: Product used for unknown indication
     Dosage: TID
     Route: 065
  3. FUROSEMIDE [Concomitant]
     Active Substance: FUROSEMIDE
     Indication: Product used for unknown indication
     Dosage: 1 DOSAGE FORM, QD
     Route: 048
     Dates: start: 20211207, end: 20211212
  4. GLUCOSAMINE [Concomitant]
     Active Substance: GLUCOSAMINE
     Indication: Product used for unknown indication
     Dosage: 1500 MG, QD, 1 TIME A DAY AT SUPPER
     Route: 048
     Dates: start: 20200214
  5. HYDROCORTISONE [Concomitant]
     Active Substance: HYDROCORTISONE
     Indication: Product used for unknown indication
     Dosage: 2 TIMES A DAY, APPLY TOPICALLY
     Route: 061
     Dates: start: 20210305
  6. LIDOCAINE [Concomitant]
     Active Substance: LIDOCAINE
     Indication: Product used for unknown indication
     Dosage: 200 MG
     Route: 065
     Dates: start: 20211119
  7. LISINOPRIL [Concomitant]
     Active Substance: LISINOPRIL
     Indication: Product used for unknown indication
     Dosage: 1 DOSAGE FORM, QD
     Route: 048
     Dates: start: 20210305
  8. LORATADINE [Concomitant]
     Active Substance: LORATADINE
     Indication: Product used for unknown indication
     Dosage: 1 DOSAGE FORM, QD
     Route: 048
  9. METOPROLOL SUCCINATE [Concomitant]
     Active Substance: METOPROLOL SUCCINATE
     Indication: Product used for unknown indication
     Dosage: 1 DOSAGE FORM, QD
     Route: 048
     Dates: start: 20211018
  10. FENTANYL [Concomitant]
     Active Substance: FENTANYL
     Indication: Product used for unknown indication
     Dosage: 1 PATCH TO THE SKIN EVERY 72 HOURS
     Route: 062
     Dates: start: 20211222
  11. OMEPRAZOLE [Concomitant]
     Active Substance: OMEPRAZOLE
     Indication: Product used for unknown indication
     Dosage: 1 DOSAGE FORM, BID, BEFORE MEALS
     Route: 048
     Dates: start: 20210305
  12. FERROUS SULFATE [Concomitant]
     Active Substance: FERROUS SULFATE
     Indication: Product used for unknown indication
     Dosage: 1 TIME PER DAY AT NOON
     Route: 048
  13. POTASSIUM CHLORIDE [Concomitant]
     Active Substance: POTASSIUM CHLORIDE
     Indication: Product used for unknown indication
     Dosage: 1 DOSAGE FORM, BID
     Route: 048
     Dates: start: 20210305
  14. PRAMIPEXOLE [Concomitant]
     Active Substance: PRAMIPEXOLE
     Indication: Product used for unknown indication
     Dosage: 1 DOSAGE FORM, QD, EVERY NIGHT AT BEDTIME
     Route: 048
     Dates: start: 20210830
  15. AMOXICILLIN [Concomitant]
     Active Substance: AMOXICILLIN
     Indication: Product used for unknown indication
     Dosage: 4 DOSAGE FORM, 4 CAPSULE BY MOUTH 1 HR BEFORE APPOINTMENT
     Route: 048
     Dates: start: 20210309
  16. ASPIRIN [Concomitant]
     Active Substance: ASPIRIN
     Indication: Product used for unknown indication
     Dosage: 1 DOSAGE FORM, QD, 1 TABLET BY MOUTH 1 TIME PER DAY
     Route: 048
     Dates: start: 20200724
  17. CALCIUM CARBONATE [Concomitant]
     Active Substance: CALCIUM CARBONATE
     Indication: Product used for unknown indication
     Dosage: 1 DOSAGE FORM, QD, AT NOON
     Route: 048
  18. CHOLECALCIFEROL [Concomitant]
     Active Substance: CHOLECALCIFEROL
     Indication: Product used for unknown indication
     Dosage: 2000 UNIT, 1 TIME PER DAY AT NOON
     Route: 048
  19. DEXAMETHASONE [Concomitant]
     Active Substance: DEXAMETHASONE
     Indication: Product used for unknown indication
     Dosage: 2 DOSAGE FORM, QD
     Route: 048
     Dates: start: 20211222
  20. SIMVASTATIN [Concomitant]
     Active Substance: SIMVASTATIN
     Indication: Product used for unknown indication
     Dosage: UNK
     Route: 065
     Dates: start: 20210305

REACTIONS (33)
  - Breast cancer metastatic [Fatal]
  - Malignant neoplasm progression [Fatal]
  - Sepsis [Unknown]
  - Acute respiratory failure [Unknown]
  - Nausea [Unknown]
  - Pain [Unknown]
  - Malaise [Unknown]
  - Leukocytosis [Unknown]
  - Pyrexia [Unknown]
  - Pleural effusion [Unknown]
  - Goitre [Unknown]
  - Essential hypertension [Unknown]
  - Hyperlipidaemia [Unknown]
  - Bone disorder [Unknown]
  - Gastrooesophageal reflux disease [Unknown]
  - Metastases to bone [Unknown]
  - Diverticulum [Unknown]
  - Dehydration [Unknown]
  - Back pain [Unknown]
  - Enteritis [Unknown]
  - Abdominal pain [Unknown]
  - Pneumonia [Unknown]
  - Chronic kidney disease [Unknown]
  - Immunosuppression [Unknown]
  - Cardiomyopathy [Unknown]
  - Cancer pain [Unknown]
  - Dyspnoea [Unknown]
  - Aortic valve stenosis [Unknown]
  - Hypotension [Unknown]
  - Iron deficiency anaemia [Unknown]
  - Chronic left ventricular failure [Unknown]
  - Tumour marker decreased [Unknown]
  - Tumour marker increased [Unknown]
